FAERS Safety Report 7089714-5 (Version None)
Quarter: 2010Q4

REPORT INFORMATION
  Report Type: 
  Country: None (occurrence: None)
  Receive Date: 20101108
  Receipt Date: 20100428
  Transmission Date: 20110411
  Serious: No
  Sender: FDA-Public Use
  Company Number: US-ABBOTT-10P-163-0642191-00

PATIENT
  Age: 69 Year
  Sex: Male

DRUGS (12)
  1. TRICOR [Suspect]
     Indication: HYPERLIPIDAEMIA
     Dosage: AT HOUR OF SLEEP
     Route: 048
  2. TRICOR [Suspect]
     Indication: BLOOD TRIGLYCERIDES INCREASED
     Dosage: AT HOUR OF SLEEP
     Route: 048
  3. TRILIPIX [Suspect]
     Indication: HYPERLIPIDAEMIA
     Dosage: AT HOUR OF SLEEP
     Route: 048
     Dates: start: 20100415
  4. TRILIPIX [Suspect]
     Indication: BLOOD TRIGLYCERIDES INCREASED
  5. LIPITOR [Concomitant]
     Indication: HYPERLIPIDAEMIA
  6. LIPITOR [Concomitant]
     Indication: BLOOD TRIGLYCERIDES INCREASED
  7. LOVAZA [Concomitant]
     Indication: PRODUCT USED FOR UNKNOWN INDICATION
  8. AVAPRO [Concomitant]
     Indication: PRODUCT USED FOR UNKNOWN INDICATION
  9. NORVASC [Concomitant]
     Indication: PRODUCT USED FOR UNKNOWN INDICATION
  10. ASPIRIN [Concomitant]
     Indication: PRODUCT USED FOR UNKNOWN INDICATION
     Route: 048
  11. ESTRACE [Concomitant]
     Indication: PRODUCT USED FOR UNKNOWN INDICATION
  12. UROXITROL [Concomitant]
     Indication: PRODUCT USED FOR UNKNOWN INDICATION

REACTIONS (4)
  - DRUG EFFECT DECREASED [None]
  - FATIGUE [None]
  - NAUSEA [None]
  - VOMITING [None]
